FAERS Safety Report 24142592 (Version 2)
Quarter: 2025Q2

REPORT INFORMATION
  Report Type: Spontaneous
  Country: CN (occurrence: CN)
  Receive Date: 20240726
  Receipt Date: 20250608
  Transmission Date: 20250716
  Serious: Yes (Hospitalization)
  Sender: COHERUS
  Company Number: CN-SHANGHAI JUNSHI BIOSCIENCES CO., LTD.-CN2024010668

PATIENT

DRUGS (4)
  1. TORIPALIMAB [Suspect]
     Active Substance: TORIPALIMAB
     Indication: Gastric cancer
     Route: 041
     Dates: start: 20240429
  2. OXALIPLATIN [Suspect]
     Active Substance: OXALIPLATIN
     Indication: Gastric cancer
     Route: 041
     Dates: start: 20240429
  3. GIMERACIL\OTERACIL\TEGAFUR [Suspect]
     Active Substance: GIMERACIL\OTERACIL POTASSIUM\TEGAFUR
     Indication: Gastric cancer
     Dates: start: 20240429, end: 20240512
  4. GIMERACIL\OTERACIL\TEGAFUR [Suspect]
     Active Substance: GIMERACIL\OTERACIL POTASSIUM\TEGAFUR
     Route: 041
     Dates: start: 20240611

REACTIONS (3)
  - Infection [Recovering/Resolving]
  - Pyrexia [Recovering/Resolving]
  - Off label use [Unknown]

NARRATIVE: CASE EVENT DATE: 20240429
